FAERS Safety Report 21491031 (Version 1)
Quarter: 2022Q4

REPORT INFORMATION
  Report Type: Spontaneous
  Country: IN (occurrence: IN)
  Receive Date: 20221021
  Receipt Date: 20221021
  Transmission Date: 20230113
  Serious: Yes (Death, Other)
  Sender: FDA-Public Use
  Company Number: IN-SUN PHARMACEUTICAL INDUSTRIES LTD-2022R1-359950

PATIENT
  Age: 31 Year
  Sex: Male

DRUGS (1)
  1. METHOTREXATE [Suspect]
     Active Substance: METHOTREXATE
     Indication: Psoriasis
     Dosage: 15 MILLIGRAM, DAILY
     Route: 065

REACTIONS (5)
  - Overdose [Fatal]
  - Respiratory failure [Fatal]
  - Sepsis [Fatal]
  - Pancytopenia [Fatal]
  - Acute kidney injury [Fatal]
